FAERS Safety Report 15177334 (Version 1)
Quarter: 2018Q3

REPORT INFORMATION
  Report Type: Report from Study
  Country: US (occurrence: US)
  Receive Date: 20180720
  Receipt Date: 20180720
  Transmission Date: 20181010
  Serious: No
  Sender: FDA-Public Use
  Company Number: US-AMGEN-USASL2018083761

PATIENT
  Age: 60 Year
  Sex: Male

DRUGS (3)
  1. SILIQ [Concomitant]
     Active Substance: BRODALUMAB
  2. REPATHA [Suspect]
     Active Substance: EVOLOCUMAB
     Indication: HYPERLIPIDAEMIA
     Dosage: 140 MG, Q2WK
     Route: 065
  3. REPATHA [Suspect]
     Active Substance: EVOLOCUMAB
     Indication: ACUTE MYOCARDIAL INFARCTION

REACTIONS (2)
  - Muscle spasms [Unknown]
  - Chills [Unknown]

NARRATIVE: CASE EVENT DATE: 2018
